FAERS Safety Report 10211023 (Version 1)
Quarter: 2014Q2

REPORT INFORMATION
  Report Type: Spontaneous
  Country: ES (occurrence: None)
  Receive Date: 20140528
  Receipt Date: 20140528
  Transmission Date: 20141212
  Serious: Yes (Death)
  Sender: FDA-Public Use
  Company Number: 2014HINLIT0464

PATIENT
  Age: 42 Year
  Sex: Male

DRUGS (3)
  1. TENOFOVIR (TENOFOVIR) UNKNOWN [Suspect]
     Indication: HIV INFECTION
  2. LOPINAVIR/RITONAVIR (LOPINAVIR/RITONAVIR) [Concomitant]
  3. IBANDRONATE (IBANDRONATE ) [Concomitant]

REACTIONS (9)
  - Osteomalacia [None]
  - Hypophosphataemia [None]
  - Haematemesis [None]
  - Osteochondrosis [None]
  - Hip fracture [None]
  - Rib fracture [None]
  - Blood calcium decreased [None]
  - Blood parathyroid hormone decreased [None]
  - Blood alkaline phosphatase increased [None]
